FAERS Safety Report 10932854 (Version 1)
Quarter: 2015Q1

REPORT INFORMATION
  Report Type: Spontaneous
  Country: US (occurrence: US)
  Receive Date: 20150320
  Receipt Date: 20150320
  Transmission Date: 20150721
  Serious: No
  Sender: FDA-Public Use
  Company Number: US-TEVA-523624USA

PATIENT
  Age: 26 Year
  Sex: Female

DRUGS (2)
  1. TINIDAZOLE. [Suspect]
     Active Substance: TINIDAZOLE
     Dosage: 1000 MILLIGRAM DAILY;
     Route: 048
     Dates: start: 20141002, end: 20141015
  2. TOPIRAMATE. [Suspect]
     Active Substance: TOPIRAMATE
     Dosage: 25 MILLIGRAM DAILY;
     Route: 065
     Dates: start: 20141017

REACTIONS (1)
  - Blood creatinine increased [Not Recovered/Not Resolved]

NARRATIVE: CASE EVENT DATE: 20141020
